FAERS Safety Report 20473537 (Version 1)
Quarter: 2022Q1

REPORT INFORMATION
  Report Type: Report from Study
  Country: US (occurrence: US)
  Receive Date: 20220215
  Receipt Date: 20220215
  Transmission Date: 20220423
  Serious: Yes (Other)
  Sender: FDA-Public Use
  Company Number: US-GILEAD-2022-0569405

PATIENT
  Age: 18 Year
  Sex: Male

DRUGS (1)
  1. AZTREONAM LYSINE [Suspect]
     Active Substance: AZTREONAM LYSINE
     Indication: Lung disorder
     Dosage: UNK, TID FOR 28 DAYS ON AND 28 DAYS OFF
     Route: 065
     Dates: start: 20201202

REACTIONS (3)
  - Seizure [Unknown]
  - Drug eruption [Unknown]
  - Off label use [Not Recovered/Not Resolved]
